FAERS Safety Report 6651932-5 (Version None)
Quarter: 2010Q1

REPORT INFORMATION
  Report Type: 
  Country: None (occurrence: None)
  Receive Date: 20100325
  Receipt Date: 20100312
  Transmission Date: 20100710
  Serious: No
  Sender: FDA-Public Use
  Company Number: US-B.I. PHARMACEUTICALS,INC./RIDGEFIELD-2010-BP-02951BP

PATIENT
  Age: 66 Year
  Sex: Male

DRUGS (8)
  1. ATROVENT HFA [Suspect]
     Indication: UPPER RESPIRATORY TRACT INFECTION
  2. ACTOS [Concomitant]
  3. AVAPRO [Concomitant]
  4. METFORMIN HCL [Concomitant]
  5. ATENOLOL [Concomitant]
  6. FENOFIBRATE [Concomitant]
  7. PROTONIX [Concomitant]
  8. VITAMIN D [Concomitant]

REACTIONS (1)
  - DYSPNOEA [None]
